FAERS Safety Report 4358511-3 (Version None)
Quarter: 2004Q2

REPORT INFORMATION
  Report Type: 
  Country: None (occurrence: None)
  Receive Date: 20040514
  Receipt Date: 20040504
  Transmission Date: 20050107
  Serious: Yes (Hospitalization)
  Sender: FDA-Public Use
  Company Number: AU-GLAXOSMITHKLINE-B0331730A

PATIENT
  Sex: Male

DRUGS (5)
  1. VENTOLIN [Suspect]
     Dates: start: 19950101
  2. NORMISON [Concomitant]
  3. MOTILIUM [Concomitant]
  4. CARAFATE [Concomitant]
  5. SERETIDE [Concomitant]

REACTIONS (4)
  - ABDOMINAL DISCOMFORT [None]
  - OESOPHAGEAL SPASM [None]
  - SALIVARY HYPERSECRETION [None]
  - STOMACH DISCOMFORT [None]
